FAERS Safety Report 25950260 (Version 1)
Quarter: 2025Q4

REPORT INFORMATION
  Report Type: Spontaneous
  Country: CA (occurrence: CA)
  Receive Date: 20251022
  Receipt Date: 20251022
  Transmission Date: 20260118
  Serious: Yes (Other)
  Sender: JOHNSON AND JOHNSON
  Company Number: CA-JNJFOC-20251022553

PATIENT
  Age: 32 Year
  Sex: Female

DRUGS (2)
  1. USTEKINUMAB [Suspect]
     Active Substance: USTEKINUMAB
     Indication: Colitis ulcerative
     Route: 058
  2. USTEKINUMAB [Suspect]
     Active Substance: USTEKINUMAB
     Route: 058

REACTIONS (3)
  - Rectal haemorrhage [Not Recovered/Not Resolved]
  - Headache [Not Recovered/Not Resolved]
  - Intentional product use issue [Unknown]
